FAERS Safety Report 6807533-9 (Version None)
Quarter: 2010Q2

REPORT INFORMATION
  Report Type: 
  Country: None (occurrence: None)
  Receive Date: 20100629
  Receipt Date: 20081021
  Transmission Date: 20101027
  Serious: No
  Sender: FDA-Public Use
  Company Number: US-PFIZER INC-2008088248

PATIENT
  Age: 57 Year
  Sex: Male

DRUGS (4)
  1. XANAX [Suspect]
     Indication: GENERALISED ANXIETY DISORDER
  2. LEXAPRO [Interacting]
     Indication: GENERALISED ANXIETY DISORDER
     Route: 048
     Dates: start: 20081002
  3. PREVACID [Concomitant]
     Indication: GASTROOESOPHAGEAL REFLUX DISEASE
  4. ZETIA [Concomitant]
     Indication: BLOOD CHOLESTEROL INCREASED

REACTIONS (3)
  - DRUG INTERACTION [None]
  - FATIGUE [None]
  - HYPERHIDROSIS [None]
